FAERS Safety Report 5321337-8 (Version None)
Quarter: 2007Q2

REPORT INFORMATION
  Report Type: 
  Country: None (occurrence: None)
  Receive Date: 20070507
  Receipt Date: 20070507
  Transmission Date: 20071010
  Serious: Yes (Hospitalization)
  Sender: FDA-Public Use
  Company Number: None

PATIENT
  Age: 73 Year
  Sex: Male
  Weight: 83.5 kg

DRUGS (2)
  1. WARFARIN SODIUM [Suspect]
     Indication: CEREBROVASCULAR ACCIDENT
     Dosage: 5 MG DAILY EXCEPT 2.5 MG ON SATURDAYS
     Dates: start: 20040827, end: 20070106
  2. RANITIDINE [Concomitant]

REACTIONS (5)
  - GASTRIC MUCOSAL LESION [None]
  - HAEMATEMESIS [None]
  - INTERNATIONAL NORMALISED RATIO INCREASED [None]
  - MALLORY-WEISS SYNDROME [None]
  - OESOPHAGITIS [None]
